FAERS Safety Report 9587271 (Version 1)
Quarter: 2013Q4

REPORT INFORMATION
  Report Type: Report from Study
  Country: CA (occurrence: CA)
  Receive Date: 20131003
  Receipt Date: 20131003
  Transmission Date: 20140711
  Serious: Yes (Hospitalization, Other)
  Sender: FDA-Public Use
  Company Number: CA-TEVA-434967USA

PATIENT
  Age: 66 Year
  Sex: Female

DRUGS (9)
  1. COPAXONE [Suspect]
     Indication: MULTIPLE SCLEROSIS
  2. METHOTREXATE [Suspect]
     Indication: ARTHRITIS
  3. FISH OIL [Concomitant]
  4. VITAMIN C [Concomitant]
  5. COENZYME Q10 [Concomitant]
  6. QUININE [Concomitant]
  7. CALCIUM [Concomitant]
  8. PREDNISONE [Concomitant]
  9. EFFEXOR [Concomitant]

REACTIONS (2)
  - Atrial fibrillation [Unknown]
  - Cardiac failure [Unknown]
